FAERS Safety Report 25490116 (Version 3)
Quarter: 2025Q3

REPORT INFORMATION
  Report Type: Spontaneous
  Country: US (occurrence: US)
  Receive Date: 20250628
  Receipt Date: 20250710
  Transmission Date: 20251020
  Serious: No
  Sender: Haleon PLC
  Company Number: US-HALEON-2249367

PATIENT

DRUGS (1)
  1. FLONASE ALLERGY RELIEF [Suspect]
     Active Substance: FLUTICASONE PROPIONATE
     Indication: Product used for unknown indication

REACTIONS (3)
  - Drug ineffective [Unknown]
  - Product container issue [Unknown]
  - Product odour abnormal [Unknown]
